FAERS Safety Report 20448642 (Version 2)
Quarter: 2022Q1

REPORT INFORMATION
  Report Type: Spontaneous
  Country: JP (occurrence: JP)
  Receive Date: 20220209
  Receipt Date: 20220303
  Transmission Date: 20220423
  Serious: Yes (Life-Threatening, Hospitalization, Other)
  Sender: FDA-Public Use
  Company Number: JP-MLMSERVICE-2022012533344971

PATIENT
  Age: 83 Year
  Sex: Male
  Weight: 67.9 kg

DRUGS (3)
  1. VANCOMYCIN [Suspect]
     Active Substance: VANCOMYCIN
     Indication: Prophylaxis
     Dosage: DISSOLVED BY 100ML SALINE
     Route: 042
     Dates: start: 20210115, end: 202101
  2. CEFTRIAXONE [Suspect]
     Active Substance: CEFTRIAXONE
     Indication: Prophylaxis
     Dosage: DISSOLVED BY 100ML SALINE
     Route: 042
     Dates: start: 20210115, end: 202101
  3. SALINE [Concomitant]
     Active Substance: SODIUM CHLORIDE
     Dosage: 1G OF EACH ABX DISSOLVED BY 100ML SALINE
     Route: 042

REACTIONS (3)
  - Acute generalised exanthematous pustulosis [Recovered/Resolved]
  - Acute kidney injury [Unknown]
  - Pustular psoriasis [Recovered/Resolved]

NARRATIVE: CASE EVENT DATE: 20210101
